FAERS Safety Report 6778805-1 (Version None)
Quarter: 2010Q2

REPORT INFORMATION
  Report Type: 
  Country: None (occurrence: None)
  Receive Date: 20100618
  Receipt Date: 20100311
  Transmission Date: 20101027
  Serious: Yes (Hospitalization, Other)
  Sender: FDA-Public Use
  Company Number: US-ASTRAZENECA-2009UW03777

PATIENT
  Age: 410 Month
  Sex: Male
  Weight: 105.2 kg

DRUGS (9)
  1. SEROQUEL [Suspect]
     Indication: BIPOLAR I DISORDER
     Route: 048
     Dates: start: 19990101, end: 20050101
  2. SEROQUEL [Suspect]
     Indication: SLEEP DISORDER
     Route: 048
     Dates: start: 19990101, end: 20050101
  3. XANAX [Concomitant]
  4. METHADONE [Concomitant]
     Dates: start: 20030101, end: 20050101
  5. DILANTIN [Concomitant]
     Dates: start: 20050824
  6. AMBIEN [Concomitant]
     Dates: start: 20050824
  7. DUVOID [Concomitant]
     Dates: start: 20060824
  8. MELATONIN [Concomitant]
     Dates: start: 20060824
  9. NAPROSYN [Concomitant]
     Route: 048
     Dates: start: 20061108

REACTIONS (7)
  - ANOXIC ENCEPHALOPATHY [None]
  - COMA [None]
  - DIABETES MELLITUS [None]
  - DIABETIC COMA [None]
  - LUNG DISORDER [None]
  - NERVOUS SYSTEM DISORDER [None]
  - OVERDOSE [None]
